FAERS Safety Report 7319752-6 (Version None)
Quarter: 2011Q1

REPORT INFORMATION
  Report Type: 
  Country: None (occurrence: None)
  Receive Date: 20110228
  Receipt Date: 20100901
  Transmission Date: 20110831
  Serious: No
  Sender: FDA-Public Use
  Company Number: A0879982A

PATIENT
  Age: 21 Year
  Sex: Female

DRUGS (1)
  1. LAMOTRIGINE [Suspect]
     Route: 065
     Dates: start: 20080101

REACTIONS (2)
  - ADVERSE EVENT [None]
  - PRODUCT SUBSTITUTION ISSUE [None]
